FAERS Safety Report 9293488 (Version 2)
Quarter: 2015Q1

REPORT INFORMATION
  Report Type: Spontaneous
  Country: SG (occurrence: SG)
  Receive Date: 20130516
  Receipt Date: 20150105
  Transmission Date: 20150721
  Serious: Yes (Hospitalization)
  Sender: FDA-Public Use
  Company Number: PHHY2013SG048482

PATIENT
  Age: 19 Year
  Sex: Female

DRUGS (1)
  1. AMPICILLIN [Suspect]
     Active Substance: AMPICILLIN
     Indication: URINARY TRACT INFECTION
     Route: 065

REACTIONS (6)
  - Renal failure [Recovered/Resolved]
  - Eosinophilia [Not Recovered/Not Resolved]
  - Tubulointerstitial nephritis [Recovered/Resolved]
  - Anuria [Recovered/Resolved]
  - Rash maculo-papular [Not Recovered/Not Resolved]
  - Dermatitis exfoliative [Not Recovered/Not Resolved]
